FAERS Safety Report 17968976 (Version 1)
Quarter: 2020Q3

REPORT INFORMATION
  Report Type: Spontaneous
  Country: US (occurrence: US)
  Receive Date: 20200701
  Receipt Date: 20200701
  Transmission Date: 20201103
  Serious: No
  Sender: FDA-Public Use
  Company Number: US-PFM-2019-06770

PATIENT
  Age: 9 Month
  Sex: Female

DRUGS (2)
  1. FLUORIDE [Concomitant]
     Active Substance: SODIUM FLUORIDE\STANNOUS FLUORIDE
     Indication: PRODUCT USED FOR UNKNOWN INDICATION
  2. HEMANGEOL [Suspect]
     Active Substance: PROPRANOLOL HYDROCHLORIDE
     Indication: INFANTILE HAEMANGIOMA
     Dosage: 2.5 ML, BID (2/DAY)
     Route: 048
     Dates: start: 201901

REACTIONS (10)
  - Nasopharyngitis [Unknown]
  - Screaming [Unknown]
  - Product dose omission issue [Unknown]
  - Off label use [Unknown]
  - Vomiting [Unknown]
  - Sleep terror [Unknown]
  - Crying [Unknown]
  - Discomfort [Unknown]
  - Peripheral coldness [Unknown]
  - Product use issue [Unknown]

NARRATIVE: CASE EVENT DATE: 20190513
